FAERS Safety Report 9463163 (Version 2)
Quarter: 2013Q4

REPORT INFORMATION
  Report Type: Spontaneous
  Country: DE (occurrence: DE)
  Receive Date: 20130817
  Receipt Date: 20131022
  Transmission Date: 20140711
  Serious: Yes (Other)
  Sender: FDA-Public Use
  Company Number: DE-UCBSA-095373

PATIENT
  Age: 46 Year
  Sex: Female

DRUGS (3)
  1. VIMPAT [Suspect]
     Route: 048
     Dates: start: 201308
  2. LEVETIRACETAM [Suspect]
     Route: 048
     Dates: start: 201308
  3. BALDRIAN DISPERT [Suspect]
     Dosage: 4 TABLETS
     Route: 048
     Dates: start: 201308

REACTIONS (4)
  - Drug abuse [Unknown]
  - Palpitations [Recovered/Resolved]
  - Nausea [Recovered/Resolved]
  - Vomiting [Recovered/Resolved]
